FAERS Safety Report 8086159-6 (Version None)
Quarter: 2012Q1

REPORT INFORMATION
  Report Type: 
  Country: None (occurrence: None)
  Receive Date: 20120128
  Receipt Date: 20110422
  Transmission Date: 20120608
  Serious: Yes (Other)
  Sender: FDA-Public Use
  Company Number: US-ABBOTT-11P-163-0721760-00

PATIENT
  Sex: Female
  Weight: 131.66 kg

DRUGS (10)
  1. HUMIRA [Suspect]
     Indication: PSORIATIC ARTHROPATHY
  2. FISH OIL [Concomitant]
     Indication: BLOOD CHOLESTEROL INCREASED
  3. FLUOXETINE [Concomitant]
     Indication: PRODUCT USED FOR UNKNOWN INDICATION
  4. INDOMETHACIN [Concomitant]
     Indication: ARTHRITIS
  5. EYE VITAMIN [Concomitant]
     Indication: EYE DISORDER
  6. ENALAPRIL [Concomitant]
     Indication: HYPERTENSION
  7. HUMIRA [Suspect]
     Indication: PSORIASIS
     Dosage: 2 INJECTIONS
     Route: 058
     Dates: start: 20110302, end: 20110316
  8. FENOFIBRATE [Concomitant]
     Indication: BLOOD CHOLESTEROL INCREASED
  9. NIASPAN [Concomitant]
     Indication: BLOOD CHOLESTEROL INCREASED
  10. LIPITOR [Concomitant]
     Indication: BLOOD CHOLESTEROL INCREASED

REACTIONS (6)
  - GINGIVITIS [None]
  - CELLULITIS [None]
  - TOOTH ABSCESS [None]
  - RASH PAPULAR [None]
  - DENTAL CARIES [None]
  - RASH PRURITIC [None]
